FAERS Safety Report 6733257-2 (Version None)
Quarter: 2010Q2

REPORT INFORMATION
  Report Type: 
  Country: None (occurrence: None)
  Receive Date: 20100520
  Receipt Date: 20100512
  Transmission Date: 20101027
  Serious: No
  Sender: FDA-Public Use
  Company Number: 2010BI005180

PATIENT
  Sex: Female

DRUGS (2)
  1. TYSABRI [Suspect]
     Indication: MULTIPLE SCLEROSIS
     Route: 042
     Dates: start: 20090105
  2. UNKNOWN MEDICATION [Concomitant]

REACTIONS (8)
  - APATHY [None]
  - APHASIA [None]
  - DEPRESSION [None]
  - DISTURBANCE IN ATTENTION [None]
  - FALL [None]
  - HEMIPARESIS [None]
  - SOMNOLENCE [None]
  - VOMITING [None]
